FAERS Safety Report 11518893 (Version 5)
Quarter: 2015Q4

REPORT INFORMATION
  Report Type: Report from Study
  Country: US (occurrence: US)
  Receive Date: 20150917
  Receipt Date: 20151228
  Transmission Date: 20160304
  Serious: No
  Sender: FDA-Public Use
  Company Number: PHEH2015US017794

PATIENT
  Age: 41 Year
  Sex: Female

DRUGS (4)
  1. EXTAVIA [Suspect]
     Active Substance: INTERFERON BETA-1B
     Dosage: 0.125 MG (0.5 ML) EVERY OTHER DAY WEEK 3-4
     Route: 058
  2. EXTAVIA [Suspect]
     Active Substance: INTERFERON BETA-1B
     Dosage: 0.1875 MG (0.75 ML) EVERY OTHER DAY WEEK 5-6
     Route: 058
  3. EXTAVIA [Suspect]
     Active Substance: INTERFERON BETA-1B
     Dosage: 0.25 MG (1 ML) EVERY OTHER DAY WEEK 7+
     Route: 058
  4. EXTAVIA [Suspect]
     Active Substance: INTERFERON BETA-1B
     Indication: MULTIPLE SCLEROSIS
     Dosage: 0.0625 MG (0.25 ML) EVERY OTHER DAY WEEK 1-2
     Route: 058
     Dates: start: 20150902

REACTIONS (14)
  - Abdominal discomfort [Unknown]
  - Injection site pain [Not Recovered/Not Resolved]
  - Pyrexia [Unknown]
  - Diarrhoea [Unknown]
  - Skin discolouration [Unknown]
  - Myalgia [Unknown]
  - Rash macular [Unknown]
  - Injection site vesicles [Unknown]
  - Headache [Not Recovered/Not Resolved]
  - Injection site discolouration [Unknown]
  - Musculoskeletal stiffness [Unknown]
  - Pain [Unknown]
  - Influenza like illness [Unknown]
  - Nausea [Unknown]

NARRATIVE: CASE EVENT DATE: 20150902
